FAERS Safety Report 14554011 (Version 4)
Quarter: 2018Q2

REPORT INFORMATION
  Report Type: Report from Study
  Country: DE (occurrence: DE)
  Receive Date: 20180220
  Receipt Date: 20180416
  Transmission Date: 20180711
  Serious: Yes (Life-Threatening, Hospitalization)
  Sender: FDA-Public Use
  Company Number: DE-JNJFOC-20180127066

PATIENT
  Age: 59 Year
  Sex: Male
  Weight: 105 kg

DRUGS (53)
  1. PREDNISONE. [Suspect]
     Active Substance: PREDNISONE
     Indication: MANTLE CELL LYMPHOMA
     Dosage: CYCLE 3
     Route: 065
     Dates: start: 20170906, end: 20170910
  2. ALLOPURINOL. [Concomitant]
     Active Substance: ALLOPURINOL
     Indication: PROPHYLAXIS
     Route: 065
     Dates: start: 20170728, end: 20170810
  3. TAZOBACTAM [Concomitant]
     Active Substance: TAZOBACTAM
     Indication: ERYSIPELAS
     Route: 065
     Dates: start: 20171015
  4. RITUXIMAB. [Suspect]
     Active Substance: RITUXIMAB
     Indication: MANTLE CELL LYMPHOMA
     Dosage: CYCLE 3
     Route: 065
     Dates: start: 20170906, end: 20170910
  5. RITUXIMAB. [Suspect]
     Active Substance: RITUXIMAB
     Indication: MANTLE CELL LYMPHOMA
     Dosage: CYCLE 5
     Route: 065
     Dates: start: 20171110, end: 20171114
  6. CYCLOPHOSPHAMIDE. [Suspect]
     Active Substance: CYCLOPHOSPHAMIDE
     Indication: MANTLE CELL LYMPHOMA
     Dosage: CYCLE 3
     Route: 065
     Dates: start: 20170906, end: 20170910
  7. PREDNISONE. [Suspect]
     Active Substance: PREDNISONE
     Indication: MANTLE CELL LYMPHOMA
     Dosage: CYCLE 1
     Route: 065
     Dates: start: 20170727, end: 20170801
  8. CYTARABINE. [Suspect]
     Active Substance: CYTARABINE
     Indication: MANTLE CELL LYMPHOMA
     Dosage: CYCLE 2
     Route: 065
     Dates: start: 20170816, end: 20170820
  9. RANITIDINE. [Concomitant]
     Active Substance: RANITIDINE
     Indication: INFUSION RELATED REACTION
     Route: 065
     Dates: start: 20170727
  10. RANITIDINE. [Concomitant]
     Active Substance: RANITIDINE
     Indication: INFUSION RELATED REACTION
     Route: 065
     Dates: start: 20170906
  11. RITUXIMAB. [Suspect]
     Active Substance: RITUXIMAB
     Indication: MANTLE CELL LYMPHOMA
     Dosage: CYCLE 4
     Route: 065
     Dates: start: 20170927, end: 20171001
  12. DOXORUBICIN [Suspect]
     Active Substance: DOXORUBICIN
     Indication: MANTLE CELL LYMPHOMA
     Dosage: CYCLE 5
     Route: 065
     Dates: start: 20171110, end: 20171114
  13. DEXAMETHASONE. [Suspect]
     Active Substance: DEXAMETHASONE
     Indication: MANTLE CELL LYMPHOMA
     Dosage: CYCLE 2
     Route: 065
     Dates: start: 20170816, end: 20170820
  14. DEXAMETHASONE. [Suspect]
     Active Substance: DEXAMETHASONE
     Indication: MANTLE CELL LYMPHOMA
     Dosage: CYCLE 4
     Route: 065
     Dates: start: 20170927, end: 20171001
  15. PIPERACILLIN [Concomitant]
     Active Substance: PIPERACILLIN
     Indication: ERYSIPELAS
     Route: 065
     Dates: start: 20171015
  16. RITUXIMAB. [Suspect]
     Active Substance: RITUXIMAB
     Indication: MANTLE CELL LYMPHOMA
     Dosage: CYCLE 1
     Route: 065
     Dates: start: 20170727, end: 20170801
  17. CYCLOPHOSPHAMIDE. [Suspect]
     Active Substance: CYCLOPHOSPHAMIDE
     Indication: MANTLE CELL LYMPHOMA
     Route: 065
     Dates: end: 20171205
  18. DOXORUBICIN [Suspect]
     Active Substance: DOXORUBICIN
     Indication: MANTLE CELL LYMPHOMA
     Dosage: CYCLE 1
     Route: 065
     Dates: start: 20170727, end: 20170801
  19. DOXORUBICIN [Suspect]
     Active Substance: DOXORUBICIN
     Indication: MANTLE CELL LYMPHOMA
     Dosage: CYCLE 3
     Route: 065
     Dates: start: 20170906, end: 20170910
  20. VINCRISTINE [Suspect]
     Active Substance: VINCRISTINE
     Indication: MANTLE CELL LYMPHOMA
     Dosage: CYCLE 1
     Route: 065
     Dates: start: 20170727, end: 20170801
  21. PREDNISONE. [Suspect]
     Active Substance: PREDNISONE
     Indication: MANTLE CELL LYMPHOMA
     Route: 065
     Dates: end: 20171205
  22. CISPLATIN. [Suspect]
     Active Substance: CISPLATIN
     Indication: MANTLE CELL LYMPHOMA
     Dosage: CYCLE 2
     Route: 065
     Dates: start: 20170816, end: 20170820
  23. DECORTIN [Concomitant]
     Active Substance: PREDNISONE
     Indication: PROPHYLACTIC CHEMOTHERAPY
     Route: 065
     Dates: start: 20170727
  24. FENISTIL [Concomitant]
     Active Substance: DIMETHINDENE
     Indication: NAUSEA
     Route: 065
     Dates: start: 20170727
  25. RITUXIMAB. [Suspect]
     Active Substance: RITUXIMAB
     Indication: MANTLE CELL LYMPHOMA
     Dosage: CYCLE 2
     Route: 065
     Dates: start: 20170816, end: 20170820
  26. CYCLOPHOSPHAMIDE. [Suspect]
     Active Substance: CYCLOPHOSPHAMIDE
     Indication: MANTLE CELL LYMPHOMA
     Dosage: CYCLE 1
     Route: 065
     Dates: start: 20170727, end: 20170801
  27. DOXORUBICIN [Suspect]
     Active Substance: DOXORUBICIN
     Indication: MANTLE CELL LYMPHOMA
     Route: 065
     Dates: end: 20171205
  28. VINCRISTINE [Suspect]
     Active Substance: VINCRISTINE
     Indication: MANTLE CELL LYMPHOMA
     Dosage: CYCLE 5
     Route: 065
     Dates: start: 20171110, end: 20171114
  29. CYTARABINE. [Suspect]
     Active Substance: CYTARABINE
     Indication: MANTLE CELL LYMPHOMA
     Dosage: CYCLE 4
     Route: 065
     Dates: start: 20170927, end: 20171001
  30. PANTOPRAZOLE [Concomitant]
     Active Substance: PANTOPRAZOLE
     Indication: PROPHYLACTIC CHEMOTHERAPY
     Route: 065
     Dates: start: 20170727
  31. PREDNISONE. [Suspect]
     Active Substance: PREDNISONE
     Indication: MANTLE CELL LYMPHOMA
     Dosage: CYCLE 5
     Route: 065
     Dates: start: 20171110, end: 20171114
  32. DEXAMETHASONE. [Suspect]
     Active Substance: DEXAMETHASONE
     Indication: MANTLE CELL LYMPHOMA
     Dosage: CYCLE 6
     Route: 065
     Dates: start: 20171130, end: 20171205
  33. CISPLATIN. [Suspect]
     Active Substance: CISPLATIN
     Indication: MANTLE CELL LYMPHOMA
     Dosage: CYCLE 4
     Route: 065
     Dates: start: 20170927, end: 20171001
  34. RANITIDINE. [Concomitant]
     Active Substance: RANITIDINE
     Indication: DYSPEPSIA
     Route: 065
     Dates: start: 20170727
  35. RANITIDINE. [Concomitant]
     Active Substance: RANITIDINE
     Indication: INFUSION RELATED REACTION
     Route: 065
     Dates: start: 20170816
  36. PARACETAMOL [Concomitant]
     Active Substance: ACETAMINOPHEN
     Indication: PROPHYLACTIC CHEMOTHERAPY
     Route: 065
     Dates: start: 20170727, end: 20171130
  37. CIPROFLOXACIN. [Concomitant]
     Active Substance: CIPROFLOXACIN
     Indication: ERYSIPELAS
     Route: 065
     Dates: start: 20171015, end: 20171015
  38. RITUXIMAB. [Suspect]
     Active Substance: RITUXIMAB
     Indication: MANTLE CELL LYMPHOMA
     Route: 065
     Dates: start: 20180119
  39. CYTARABINE. [Suspect]
     Active Substance: CYTARABINE
     Indication: MANTLE CELL LYMPHOMA
     Dosage: CYCLE 6
     Route: 065
     Dates: start: 20171130, end: 20171205
  40. DOLANTIN [Concomitant]
     Active Substance: MEPERIDINE
     Indication: INFUSION RELATED REACTION
     Route: 065
     Dates: start: 20170727, end: 20170727
  41. RANITIDINE. [Concomitant]
     Active Substance: RANITIDINE
     Indication: DYSPEPSIA
     Route: 065
     Dates: start: 20170816
  42. RANITIDINE. [Concomitant]
     Active Substance: RANITIDINE
     Indication: DYSPEPSIA
     Route: 065
     Dates: start: 20170906
  43. MESNA. [Concomitant]
     Active Substance: MESNA
     Indication: PROPHYLACTIC CHEMOTHERAPY
     Route: 065
     Dates: start: 20170727
  44. IBRUTINIB [Suspect]
     Active Substance: IBRUTINIB
     Indication: MANTLE CELL LYMPHOMA
     Route: 048
     Dates: start: 20170728, end: 20180208
  45. RITUXIMAB. [Suspect]
     Active Substance: RITUXIMAB
     Indication: MANTLE CELL LYMPHOMA
     Dosage: CYCLE 6
     Route: 065
     Dates: start: 20171130, end: 20171205
  46. CYCLOPHOSPHAMIDE. [Suspect]
     Active Substance: CYCLOPHOSPHAMIDE
     Indication: MANTLE CELL LYMPHOMA
     Dosage: CYCLE 5
     Route: 065
     Dates: start: 20171110, end: 20171114
  47. VINCRISTINE [Suspect]
     Active Substance: VINCRISTINE
     Indication: MANTLE CELL LYMPHOMA
     Dosage: CYCLE 3
     Route: 065
     Dates: start: 20170906, end: 20170910
  48. VINCRISTINE [Suspect]
     Active Substance: VINCRISTINE
     Indication: MANTLE CELL LYMPHOMA
     Route: 065
     Dates: end: 20171205
  49. CISPLATIN. [Suspect]
     Active Substance: CISPLATIN
     Indication: MANTLE CELL LYMPHOMA
     Dosage: CYCLE 6
     Route: 065
     Dates: start: 20171130, end: 20171205
  50. G-CSF [Concomitant]
     Active Substance: GRANULOCYTE COLONY-STIMULATING FACTOR NOS
     Indication: PROPHYLACTIC CHEMOTHERAPY
     Route: 065
     Dates: start: 20170728
  51. METOCLOPRAMIDE. [Concomitant]
     Active Substance: METOCLOPRAMIDE
     Indication: NAUSEA
     Route: 065
     Dates: start: 20170727
  52. EMEND [Concomitant]
     Active Substance: APREPITANT
     Indication: PROPHYLAXIS OF NAUSEA AND VOMITING
     Route: 065
     Dates: start: 20170817
  53. DIMENHYDRINATE. [Concomitant]
     Active Substance: DIMENHYDRINATE
     Indication: NAUSEA
     Route: 065
     Dates: start: 20170820

REACTIONS (2)
  - Tumour lysis syndrome [Recovering/Resolving]
  - Infusion related reaction [Recovered/Resolved]

NARRATIVE: CASE EVENT DATE: 20180119
